FAERS Safety Report 14507402 (Version 1)
Quarter: 2018Q1

REPORT INFORMATION
  Report Type: Spontaneous
  Country: US (occurrence: US)
  Receive Date: 20180208
  Receipt Date: 20180208
  Transmission Date: 20180509
  Serious: No
  Sender: FDA-Public Use
  Company Number: US-PURDUE-USA-2017-0141025

PATIENT
  Age: 81 Year
  Sex: Female

DRUGS (3)
  1. BUTRANS [Suspect]
     Active Substance: BUPRENORPHINE
     Indication: ABDOMINAL PAIN UPPER
     Dosage: 5 MCG/HR, WEEKLY
     Route: 062
     Dates: start: 20170927
  2. BUTRANS [Suspect]
     Active Substance: BUPRENORPHINE
     Indication: DIVERTICULITIS
  3. BUTRANS [Suspect]
     Active Substance: BUPRENORPHINE
     Indication: CONSTIPATION

REACTIONS (6)
  - Dizziness [Not Recovered/Not Resolved]
  - Headache [Not Recovered/Not Resolved]
  - Fatigue [Not Recovered/Not Resolved]
  - Extra dose administered [Recovered/Resolved]
  - Inadequate analgesia [Unknown]
  - Asthenia [Not Recovered/Not Resolved]

NARRATIVE: CASE EVENT DATE: 20171001
